FAERS Safety Report 21054694 (Version 3)
Quarter: 2022Q3

REPORT INFORMATION
  Report Type: Other
  Country: JP (occurrence: JP)
  Receive Date: 20220707
  Receipt Date: 20220920
  Transmission Date: 20221027
  Serious: Yes (Hospitalization, Other)
  Sender: FDA-Public Use
  Company Number: JP-CHUGAI-2022000586

PATIENT
  Age: 69 Year
  Sex: Female
  Weight: 55.9 kg

DRUGS (10)
  1. ATEZOLIZUMAB [Suspect]
     Active Substance: ATEZOLIZUMAB
     Indication: Non-small cell lung cancer
     Dosage: 1200 MILLIGRAM, SINGLE
     Route: 041
     Dates: start: 20211208, end: 20211208
  2. ATEZOLIZUMAB [Suspect]
     Active Substance: ATEZOLIZUMAB
     Dosage: 1200 MILLIGRAM, ONCE/3WEEKS?MOST RECENT DOSE: 18/FEB/2022
     Route: 041
     Dates: start: 20220105
  3. CARBOPLATIN [Suspect]
     Active Substance: CARBOPLATIN
     Indication: Non-small cell lung cancer
     Dosage: 395 MILLIGRAM, SINGLE
     Route: 041
     Dates: start: 20211208, end: 20211208
  4. CARBOPLATIN [Suspect]
     Active Substance: CARBOPLATIN
     Dosage: 310 MILLIGRAM, ONCE/3WEEKS?MOSTY RECENT DOSE: 18/FEB/2022
     Route: 041
     Dates: start: 20220105
  5. PACLITAXEL [Suspect]
     Active Substance: PACLITAXEL
     Indication: Non-small cell lung cancer
     Dosage: 305 MILLIGRAM, SINGLE
     Route: 041
     Dates: start: 20211208, end: 20211208
  6. PACLITAXEL [Suspect]
     Active Substance: PACLITAXEL
     Dosage: 240 MILLIGRAM, ONCE/3WEEKS?MOST RECENT DOES; 18/FEB/2022
     Route: 041
     Dates: start: 20220105
  7. BEVACIZUMAB [Suspect]
     Active Substance: BEVACIZUMAB
     Indication: Non-small cell lung cancer
     Dosage: 835 MILLIGRAM, QD
     Route: 041
     Dates: start: 20211208, end: 20211208
  8. BEVACIZUMAB [Suspect]
     Active Substance: BEVACIZUMAB
     Dosage: 835 MILLIGRAM, ONCE/3WEEKS, MOST RECENT DOSE ON 18/FEB/2022
     Route: 041
     Dates: start: 20220105
  9. BEVACIZUMAB [Concomitant]
     Active Substance: BEVACIZUMAB
     Indication: Non-small cell lung cancer
     Dosage: 835 MILLIGRAM, QD
     Route: 041
     Dates: start: 20211208, end: 20211208
  10. BEVACIZUMAB [Concomitant]
     Active Substance: BEVACIZUMAB
     Dosage: 835 MILLIGRAM, ONCE/3WEEKS
     Route: 041
     Dates: start: 20220105

REACTIONS (5)
  - Drug eruption [Recovering/Resolving]
  - Neutrophil count decreased [Recovered/Resolved]
  - Hypertension [Recovering/Resolving]
  - Neuropathy peripheral [Not Recovered/Not Resolved]
  - Myalgia [Recovering/Resolving]

NARRATIVE: CASE EVENT DATE: 20211210
